FAERS Safety Report 19898320 (Version 3)
Quarter: 2021Q4

REPORT INFORMATION
  Report Type: Spontaneous
  Country: BR (occurrence: BR)
  Receive Date: 20210930
  Receipt Date: 20211213
  Transmission Date: 20220303
  Serious: Yes (Life-Threatening)
  Sender: FDA-Public Use
  Company Number: BR-CHIESI-2021CHF04791

PATIENT
  Sex: Male

DRUGS (2)
  1. CUROSURF [Suspect]
     Active Substance: PORACTANT ALFA
     Indication: Neonatal respiratory distress syndrome
     Dosage: UNK, QD
     Route: 038
  2. CUROSURF [Suspect]
     Active Substance: PORACTANT ALFA
     Dosage: UNK
     Route: 038

REACTIONS (5)
  - Neonatal respiratory distress syndrome [Recovered/Resolved]
  - Condition aggravated [Recovered/Resolved]
  - Drug effect less than expected [Recovered/Resolved]
  - Product use issue [Recovered/Resolved]
  - Product complaint [Recovered/Resolved]

NARRATIVE: CASE EVENT DATE: 20210923
